FAERS Safety Report 19208496 (Version 1)
Quarter: 2021Q2

REPORT INFORMATION
  Report Type: Spontaneous
  Country: BR (occurrence: BR)
  Receive Date: 20210503
  Receipt Date: 20210503
  Transmission Date: 20210717
  Serious: Yes (Other)
  Sender: FDA-Public Use
  Company Number: BR-NOVOPROD-807667

PATIENT
  Age: 62 Year
  Sex: Female
  Weight: 79.4 kg

DRUGS (16)
  1. TRESIBA [Suspect]
     Active Substance: INSULIN DEGLUDEC
     Dosage: 25 IU
     Route: 065
  2. NOVORAPID [Suspect]
     Active Substance: INSULIN ASPART
     Dosage: 8 + 7 + 6
     Route: 065
  3. NOVORAPID [Suspect]
     Active Substance: INSULIN ASPART
     Dosage: 8+ 6+ 5
     Route: 065
  4. DAPAGLIFLOZIN. [Concomitant]
     Active Substance: DAPAGLIFLOZIN
     Dosage: 10 MG
     Route: 065
  5. LOSARTAN. [Concomitant]
     Active Substance: LOSARTAN
     Dosage: 50MG 2X /DAY
     Route: 065
  6. TRESIBA [Suspect]
     Active Substance: INSULIN DEGLUDEC
     Dosage: 24 IU
     Route: 065
  7. TRESIBA [Suspect]
     Active Substance: INSULIN DEGLUDEC
     Dosage: 24 IU
     Route: 065
  8. TRESIBA [Suspect]
     Active Substance: INSULIN DEGLUDEC
     Dosage: 23 IU
     Route: 065
  9. TRESIBA [Suspect]
     Active Substance: INSULIN DEGLUDEC
     Dosage: UNK
  10. HUMALOG [Concomitant]
     Active Substance: INSULIN LISPRO
     Dosage: 26 + 26+ 26 PRE?PRANDIAL
     Route: 065
  11. TRESIBA [Suspect]
     Active Substance: INSULIN DEGLUDEC
     Dosage: 26 IU
     Route: 065
  12. NOVORAPID [Suspect]
     Active Substance: INSULIN ASPART
     Indication: LATENT AUTOIMMUNE DIABETES IN ADULTS
     Dosage: 2 + 2 + 2
     Route: 065
  13. NOVORAPID [Suspect]
     Active Substance: INSULIN ASPART
     Dosage: 9+ 7 + 6 FIFTEEN MINUTES BEFORE BREAKFAST
     Route: 065
  14. GLIFAGE [Concomitant]
     Active Substance: METFORMIN HYDROCHLORIDE
     Dosage: 2 G, QD
     Route: 065
  15. LEVOTHYROXINE. [Concomitant]
     Active Substance: LEVOTHYROXINE
     Dosage: 125MCG
     Route: 065
  16. TRESIBA [Suspect]
     Active Substance: INSULIN DEGLUDEC
     Indication: LATENT AUTOIMMUNE DIABETES IN ADULTS
     Dosage: 16 IU
     Route: 065

REACTIONS (6)
  - Diastolic dysfunction [Unknown]
  - Maculopathy [Unknown]
  - Peripheral motor neuropathy [Unknown]
  - Diabetic retinopathy [Unknown]
  - Blood glucose increased [Unknown]
  - Hypoglycaemia [Unknown]
